FAERS Safety Report 9980892 (Version 1)
Quarter: 2014Q1

REPORT INFORMATION
  Report Type: Spontaneous
  Country: GB (occurrence: None)
  Receive Date: 20140305
  Receipt Date: 20140305
  Transmission Date: 20141002
  Serious: Yes (Life-Threatening, Hospitalization)
  Sender: FDA-Public Use
  Company Number: AUR-APL-2014-012157

PATIENT
  Age: 89 Year
  Sex: Female

DRUGS (7)
  1. MIRTAZAPINE (MIRTAZAPINE) [Suspect]
     Indication: DEPRESSION
     Route: 048
     Dates: start: 20140209, end: 20140209
  2. DIHYDROCODEINE (DIHYDROCODEINE) [Suspect]
     Route: 048
     Dates: start: 20140204, end: 20140209
  3. CLOPIDOGREL (CLOPIDOGREL) [Concomitant]
  4. LIDOCAINE (LIDOCAINE) [Concomitant]
  5. NITROFURANTOIN (NITROFURANTOIN) [Concomitant]
  6. PARACETAMOL (PARACETAMOL) [Concomitant]
  7. SIMVASTATIN (SIMVASTATIN) [Concomitant]

REACTIONS (7)
  - Hypotension [None]
  - Tachycardia [None]
  - Oxygen saturation decreased [None]
  - Coma scale abnormal [None]
  - Rash erythematous [None]
  - Rash [None]
  - Anaphylactic reaction [None]
